FAERS Safety Report 20206070 (Version 1)
Quarter: 2021Q4

REPORT INFORMATION
  Report Type: Spontaneous
  Country: US (occurrence: None)
  Receive Date: 20211218
  Receipt Date: 20211218
  Transmission Date: 20220304
  Serious: Yes (Other)
  Sender: FDA-Public Use
  Company Number: None

PATIENT
  Age: 62 Year
  Sex: Male
  Weight: 81 kg

DRUGS (2)
  1. REGEN-COV [Suspect]
     Active Substance: CASIRIVIMAB\IMDEVIMAB
     Indication: COVID-19 treatment
     Dates: start: 20211129, end: 20211129
  2. DEXAMETHASONE [Suspect]
     Active Substance: DEXAMETHASONE
     Indication: COVID-19 treatment
     Dosage: OTHER QUANTITY : 1 TABLET(S);?FREQUENCY : DAILY;?
     Route: 048
     Dates: start: 20211204, end: 20211216

REACTIONS (9)
  - Hypersensitivity [None]
  - Rash [None]
  - Urticaria [None]
  - Pruritus [None]
  - Myalgia [None]
  - Condition aggravated [None]
  - Pain [None]
  - Discomfort [None]
  - Swelling [None]

NARRATIVE: CASE EVENT DATE: 20211217
